FAERS Safety Report 24333258 (Version 6)
Quarter: 2025Q1

REPORT INFORMATION
  Report Type: Spontaneous
  Country: US (occurrence: US)
  Receive Date: 20240918
  Receipt Date: 20250129
  Transmission Date: 20250408
  Serious: No
  Sender: PFIZER
  Company Number: US-PFIZER INC-PV202400121537

PATIENT
  Age: 84 Year
  Sex: Female

DRUGS (4)
  1. IBRANCE [Suspect]
     Active Substance: PALBOCICLIB
     Indication: Breast cancer female
  2. IBRANCE [Suspect]
     Active Substance: PALBOCICLIB
     Dosage: 125 MG, 1X/DAY (1X 125 MG TABLET, ONCE DAILY)
  3. IBRANCE [Suspect]
     Active Substance: PALBOCICLIB
  4. LETROZOLE [Suspect]
     Active Substance: LETROZOLE

REACTIONS (14)
  - Arthritis [Unknown]
  - Hot flush [Unknown]
  - Vessel puncture site haemorrhage [Unknown]
  - Hyperhidrosis [Unknown]
  - Spinal pain [Unknown]
  - Weight decreased [Unknown]
  - White blood cell count decreased [Unknown]
  - Epistaxis [Unknown]
  - Alopecia [Unknown]
  - Fatigue [Unknown]
  - Diarrhoea [Recovering/Resolving]
  - Red blood cell count decreased [Unknown]
  - Asthenia [Unknown]
  - Decreased appetite [Unknown]

NARRATIVE: CASE EVENT DATE: 20240101
